FAERS Safety Report 19589550 (Version 5)
Quarter: 2021Q4

REPORT INFORMATION
  Report Type: Report from Study
  Country: ES (occurrence: ES)
  Receive Date: 20210721
  Receipt Date: 20211228
  Transmission Date: 20220303
  Serious: Yes (Death, Life-Threatening, Hospitalization, Other)
  Sender: FDA-Public Use
  Company Number: ES-JNJFOC-20210737097

PATIENT
  Age: 47 Year
  Sex: Female
  Weight: 40 kg

DRUGS (1)
  1. SIMPONI [Suspect]
     Active Substance: GOLIMUMAB
     Indication: Colitis ulcerative
     Route: 058
     Dates: start: 20190227, end: 20210622

REACTIONS (1)
  - Adenocarcinoma pancreas [Fatal]

NARRATIVE: CASE EVENT DATE: 20210501
